FAERS Safety Report 9611862 (Version 3)
Quarter: 2013Q4

REPORT INFORMATION
  Report Type: Spontaneous
  Country: US (occurrence: US)
  Receive Date: 20131010
  Receipt Date: 20131213
  Transmission Date: 20140711
  Serious: No
  Sender: FDA-Public Use
  Company Number: US-009507513-1310USA001271

PATIENT
  Age: 25 Year
  Sex: Female
  Weight: 69.84 kg

DRUGS (1)
  1. IMPLANON [Suspect]
     Indication: CONTRACEPTION
     Dosage: UNK
     Route: 059

REACTIONS (5)
  - Device difficult to use [Not Recovered/Not Resolved]
  - Incorrect drug administration duration [Unknown]
  - Implant site pain [Not Recovered/Not Resolved]
  - Amenorrhoea [Not Recovered/Not Resolved]
  - Medical device complication [Not Recovered/Not Resolved]
